FAERS Safety Report 10953143 (Version 1)
Quarter: 2015Q1

REPORT INFORMATION
  Report Type: Spontaneous
  Country: JP (occurrence: JP)
  Receive Date: 20150325
  Receipt Date: 20150325
  Transmission Date: 20150721
  Serious: Yes (Other)
  Sender: FDA-Public Use
  Company Number: JP-ELI_LILLY_AND_COMPANY-JP201503007687

PATIENT
  Age: 40 Year
  Sex: Female
  Weight: 60.5 kg

DRUGS (3)
  1. HUMALOG [Suspect]
     Active Substance: INSULIN LISPRO
     Indication: GESTATIONAL DIABETES
     Dosage: 55-60 IU
     Route: 058
     Dates: start: 20110206, end: 20110306
  2. MAGSENT [Suspect]
     Active Substance: DEXTROSE\MAGNESIUM SULFATE HEPTAHYDRATE
     Indication: UTERINE CONTRACTIONS DURING PREGNANCY
     Dosage: 10-20 G
     Route: 065
     Dates: start: 20110214, end: 20110306
  3. UTEMERIN [Concomitant]
     Active Substance: RITODRINE
     Indication: UTERINE CONTRACTIONS DURING PREGNANCY
     Dosage: 150-200 MG
     Route: 042
     Dates: start: 20110209, end: 20110306

REACTIONS (7)
  - Genital haemorrhage [Unknown]
  - Headache [Unknown]
  - Maternal exposure during pregnancy [Unknown]
  - Blood glucose increased [Unknown]
  - Inappropriate schedule of drug administration [Unknown]
  - Caesarean section [None]
  - Malaise [Unknown]

NARRATIVE: CASE EVENT DATE: 20110305
